FAERS Safety Report 8223807-1 (Version None)
Quarter: 2012Q1

REPORT INFORMATION
  Report Type: 
  Country: None (occurrence: None)
  Receive Date: 20120321
  Receipt Date: 20120321
  Transmission Date: 20120608
  Serious: Yes (Other)
  Sender: FDA-Public Use
  Company Number: None

PATIENT
  Age: 62 Year
  Sex: Male
  Weight: 68.038 kg

DRUGS (2)
  1. LOSARTAN POTASSIUM [Suspect]
  2. LOSARTAN POTASSIUM [Suspect]
     Indication: BLOOD PRESSURE MANAGEMENT
     Dosage: 25
     Route: 048
     Dates: start: 20120114, end: 20120317

REACTIONS (4)
  - PRODUCT SUBSTITUTION ISSUE [None]
  - HEADACHE [None]
  - DIZZINESS [None]
  - HEART RATE DECREASED [None]
